FAERS Safety Report 6641416-2 (Version None)
Quarter: 2010Q1

REPORT INFORMATION
  Report Type: 
  Country: None (occurrence: None)
  Receive Date: 20100317
  Receipt Date: 20100317
  Transmission Date: 20100710
  Serious: Yes (Other)
  Sender: FDA-Public Use
  Company Number: None

PATIENT
  Age: 13 Month
  Sex: Female
  Weight: 10.9 kg

DRUGS (1)
  1. OMNICEF [Suspect]
     Indication: EAR INFECTION
     Dosage: 1 TSP. ONCE PER DAY ORAL SUSPENSION (LIQUID)
     Route: 048
     Dates: start: 20100201

REACTIONS (1)
  - LACTOSE INTOLERANCE [None]
